FAERS Safety Report 25582255 (Version 2)
Quarter: 2025Q3

REPORT INFORMATION
  Report Type: Spontaneous
  Country: EU (occurrence: EU)
  Receive Date: 20250719
  Receipt Date: 20250731
  Transmission Date: 20251020
  Serious: Yes (Disabling, Other)
  Sender: CELLTRION
  Company Number: None

PATIENT

DRUGS (3)
  1. RITUXIMAB [Suspect]
     Active Substance: RITUXIMAB
     Indication: Platelet count decreased
     Dates: start: 20240110, end: 20240110
  2. RITUXIMAB [Suspect]
     Active Substance: RITUXIMAB
     Dates: start: 20240124, end: 20240124
  3. RITUXIMAB [Suspect]
     Active Substance: RITUXIMAB
     Indication: Platelet count decreased
     Dates: start: 20240110, end: 20241224

REACTIONS (11)
  - Loss of personal independence in daily activities [Unknown]
  - Sick leave [Unknown]
  - Headache [Recovered/Resolved]
  - Arrhythmia [Recovered/Resolved]
  - Pain [Recovered/Resolved]
  - Muscle spasms [Recovered/Resolved]
  - Asthenia [Recovered/Resolved]
  - Heart rate increased [Not Recovered/Not Resolved]
  - Hypertension [Not Recovered/Not Resolved]
  - Insomnia [Not Recovered/Not Resolved]
  - Intentional product use issue [Unknown]

NARRATIVE: CASE EVENT DATE: 20240110
